FAERS Safety Report 7094803-5 (Version None)
Quarter: 2010Q4

REPORT INFORMATION
  Report Type: 
  Country: None (occurrence: None)
  Receive Date: 20101110
  Receipt Date: 20101102
  Transmission Date: 20110411
  Serious: Yes (Other)
  Sender: FDA-Public Use
  Company Number: NO-AMGEN-NORSP2010003051

PATIENT

DRUGS (1)
  1. ENBREL [Suspect]
     Dosage: UNK UNK, UNK

REACTIONS (1)
  - MALIGNANT MELANOMA [None]
